FAERS Safety Report 6650880-4 (Version None)
Quarter: 2010Q1

REPORT INFORMATION
  Report Type: 
  Country: None (occurrence: None)
  Receive Date: 20100325
  Receipt Date: 20100305
  Transmission Date: 20100710
  Serious: No
  Sender: FDA-Public Use
  Company Number: US-BIOGENIDEC-2010BI007782

PATIENT
  Age: 56 Year
  Sex: Female

DRUGS (5)
  1. TYSABRI [Suspect]
     Indication: MULTIPLE SCLEROSIS
     Route: 042
     Dates: start: 20070205, end: 20091201
  2. TYSABRI [Suspect]
     Route: 042
     Dates: start: 20091201
  3. SYMMETREL [Concomitant]
     Indication: FATIGUE
     Dates: start: 20000101
  4. NAMENDA [Concomitant]
     Indication: BRADYPHRENIA
     Dates: start: 20060101
  5. NAMENDA [Concomitant]
     Indication: COGNITIVE DISORDER
     Dates: start: 20060101

REACTIONS (1)
  - LOCALISED INFECTION [None]
